FAERS Safety Report 20686009 (Version 1)
Quarter: 2022Q2

REPORT INFORMATION
  Report Type: Spontaneous
  Country: AU (occurrence: AU)
  Receive Date: 20220407
  Receipt Date: 20220407
  Transmission Date: 20220720
  Serious: Yes (Other)
  Sender: FDA-Public Use
  Company Number: AU-Atnahs Limited-ATNAHS20220405014

PATIENT
  Age: 24 Year
  Sex: Female

DRUGS (8)
  1. DIAZEPAM [Suspect]
     Active Substance: DIAZEPAM
     Indication: Dyspnoea
     Route: 065
  2. METFORMIN HYDROCHLORIDE [Suspect]
     Active Substance: METFORMIN HYDROCHLORIDE
     Indication: Dyspnoea
     Route: 065
  3. AMISULPRIDE [Suspect]
     Active Substance: AMISULPRIDE
     Indication: Dyspnoea
     Route: 065
  4. CLOZAPINE [Suspect]
     Active Substance: CLOZAPINE
     Indication: Schizophrenia
     Route: 048
  5. FUROSEMIDE [Suspect]
     Active Substance: FUROSEMIDE
     Indication: Dyspnoea
     Route: 065
  6. MIRTAZAPINE [Suspect]
     Active Substance: MIRTAZAPINE
     Indication: Dyspnoea
     Route: 065
  7. TOPIRAMATE [Suspect]
     Active Substance: TOPIRAMATE
     Indication: Product used for unknown indication
     Route: 065
  8. VALPROIC ACID [Suspect]
     Active Substance: VALPROIC ACID
     Indication: Dyspnoea
     Route: 065

REACTIONS (23)
  - Myocarditis [Recovered/Resolved]
  - Fibula fracture [Unknown]
  - Antipsychotic drug level decreased [Recovered/Resolved]
  - Aspartate aminotransferase decreased [Not Recovered/Not Resolved]
  - Blood alkaline phosphatase increased [Not Recovered/Not Resolved]
  - Blood bilirubin decreased [Not Recovered/Not Resolved]
  - Blood cholesterol increased [Recovered/Resolved]
  - Blood glucose increased [Recovering/Resolving]
  - Blood phosphorus increased [Unknown]
  - Blood prolactin increased [Not Recovered/Not Resolved]
  - C-reactive protein increased [Unknown]
  - Haematocrit decreased [Unknown]
  - Haemoglobin decreased [Not Recovered/Not Resolved]
  - Mean cell haemoglobin concentration decreased [Not Recovered/Not Resolved]
  - Mean cell haemoglobin decreased [Not Recovered/Not Resolved]
  - Mean cell volume decreased [Not Recovered/Not Resolved]
  - Off label use [Unknown]
  - Red cell distribution width increased [Not Recovered/Not Resolved]
  - Serum ferritin decreased [Unknown]
  - Sinus tachycardia [Unknown]
  - Thyroxine free decreased [Unknown]
  - Transferrin saturation decreased [Unknown]
  - Troponin increased [Unknown]

NARRATIVE: CASE EVENT DATE: 20111102
